FAERS Safety Report 19140582 (Version 2)
Quarter: 2021Q3

REPORT INFORMATION
  Report Type: Spontaneous
  Country: US (occurrence: US)
  Receive Date: 20210415
  Receipt Date: 20210810
  Transmission Date: 20211014
  Serious: No
  Sender: FDA-Public Use
  Company Number: US-PFIZER INC-2021324510

PATIENT
  Age: 58 Year
  Sex: Male

DRUGS (1)
  1. XELJANZ XR [Suspect]
     Active Substance: TOFACITINIB CITRATE
     Indication: RHEUMATOID ARTHRITIS
     Dosage: 11 MG, DAILY
     Route: 048
     Dates: start: 20210220

REACTIONS (7)
  - Sinus disorder [Unknown]
  - Sinus congestion [Unknown]
  - Toothache [Unknown]
  - Chest discomfort [Unknown]
  - Chest pain [Unknown]
  - Headache [Unknown]
  - Blood pressure diastolic increased [Unknown]
